FAERS Safety Report 11649215 (Version 9)
Quarter: 2018Q1

REPORT INFORMATION
  Report Type: Report from Study
  Country: US (occurrence: US)
  Receive Date: 20151021
  Receipt Date: 20180301
  Transmission Date: 20180508
  Serious: Yes (Death, Hospitalization)
  Sender: FDA-Public Use
  Company Number: US-ACTELION-A-US2015-125620

PATIENT
  Age: 51 Year
  Sex: Female

DRUGS (11)
  1. REMODULIN [Suspect]
     Active Substance: TREPROSTINIL
     Indication: PRODUCT USED FOR UNKNOWN INDICATION
     Dosage: 120 NG/KG, PER MIN
     Route: 042
     Dates: start: 20130920, end: 20180128
  2. TREPROSTINIL [Suspect]
     Active Substance: TREPROSTINIL
     Indication: PRODUCT USED FOR UNKNOWN INDICATION
     Route: 048
  3. VITAMIN D [Concomitant]
     Active Substance: CHOLECALCIFEROL
  4. COLCRYS [Concomitant]
     Active Substance: COLCHICINE
  5. MAGNESIUM [Concomitant]
     Active Substance: MAGNESIUM
  6. FUROSEMIDE. [Concomitant]
     Active Substance: FUROSEMIDE
  7. OPSUMIT [Suspect]
     Active Substance: MACITENTAN
     Indication: PULMONARY HYPERTENSION
     Dosage: 10 MG, QD
     Route: 048
     Dates: start: 201406
  8. ADEMPAS [Concomitant]
     Active Substance: RIOCIGUAT
     Dosage: 1.5 MG, TID
     Dates: start: 20160415, end: 20180128
  9. LOSARTAN. [Concomitant]
     Active Substance: LOSARTAN
  10. ADCIRCA [Concomitant]
     Active Substance: TADALAFIL
  11. IRON [Concomitant]
     Active Substance: IRON

REACTIONS (24)
  - Headache [Not Recovered/Not Resolved]
  - Fatigue [Not Recovered/Not Resolved]
  - Failure to thrive [Unknown]
  - Anaemia [Not Recovered/Not Resolved]
  - Malaise [Recovered/Resolved]
  - Respiratory failure [Fatal]
  - Pulmonary arterial hypertension [Fatal]
  - Condition aggravated [Fatal]
  - Oedema peripheral [Recovered/Resolved]
  - Cough [Unknown]
  - Hypoxia [Fatal]
  - Scleroderma [Fatal]
  - Unresponsive to stimuli [Fatal]
  - Dyspnoea exertional [Not Recovered/Not Resolved]
  - Bronchitis [Unknown]
  - Abdominal discomfort [Unknown]
  - Multiple organ dysfunction syndrome [Fatal]
  - Pericardial excision [Unknown]
  - Asthenia [Not Recovered/Not Resolved]
  - Brain natriuretic peptide increased [Unknown]
  - Diarrhoea [Not Recovered/Not Resolved]
  - Pulmonary arterial pressure increased [Unknown]
  - Acute kidney injury [Unknown]
  - Dyspnoea [Not Recovered/Not Resolved]

NARRATIVE: CASE EVENT DATE: 20161208
